FAERS Safety Report 13658853 (Version 1)
Quarter: 2017Q2

REPORT INFORMATION
  Report Type: Spontaneous
  Country: US (occurrence: US)
  Receive Date: 20170615
  Receipt Date: 20170615
  Transmission Date: 20170830
  Serious: No
  Sender: FDA-Public Use
  Company Number: None

PATIENT
  Age: 75 Year
  Sex: Female

DRUGS (1)
  1. PROLIA [Suspect]
     Active Substance: DENOSUMAB

REACTIONS (8)
  - Malaise [None]
  - Fatigue [None]
  - Insomnia [None]
  - Influenza like illness [None]
  - Palpitations [None]
  - Nausea [None]
  - Decreased appetite [None]
  - Hot flush [None]

NARRATIVE: CASE EVENT DATE: 20170615
